FAERS Safety Report 5244838-X (Version None)
Quarter: 2007Q1

REPORT INFORMATION
  Report Type: 
  Country: None (occurrence: None)
  Receive Date: 20070216
  Receipt Date: 20070201
  Transmission Date: 20070707
  Serious: Yes (Hospitalization)
  Sender: FDA-Public Use
  Company Number: 2007BI002902

PATIENT
  Age: 62 Year
  Sex: Male
  Weight: 70.4 kg

DRUGS (8)
  1. ZEVALIN [Suspect]
     Indication: LYMPHOMA
     Dosage: 191.1 MBQ; 1X; IV
     Route: 042
     Dates: start: 20020806, end: 20020806
  2. ZEVALIN [Suspect]
     Indication: LYMPHOMA
     Dosage: 782 MBQ; 1X; IV
     Route: 042
     Dates: start: 20020813, end: 20020813
  3. RITUXIMAB [Concomitant]
  4. CLADRIBINE [Concomitant]
  5. ENDOXAN [Concomitant]
  6. VINCRISTINE [Concomitant]
  7. PROCARBAZINE [Concomitant]
  8. PREDNISONE [Concomitant]

REACTIONS (2)
  - GASTRIC CANCER [None]
  - LYMPHADENOPATHY [None]
